FAERS Safety Report 6952860-8 (Version None)
Quarter: 2010Q3

REPORT INFORMATION
  Report Type: 
  Country: None (occurrence: None)
  Receive Date: 20100829
  Receipt Date: 20100520
  Transmission Date: 20110219
  Serious: No
  Sender: FDA-Public Use
  Company Number: US-ABBOTT-10P-163-0646396-00

PATIENT
  Sex: Female
  Weight: 50.394 kg

DRUGS (17)
  1. NIASPAN [Suspect]
     Indication: HIGH DENSITY LIPOPROTEIN DECREASED
     Dosage: AT BED TIME
  2. NIASPAN [Suspect]
     Indication: BLOOD CHOLESTEROL INCREASED
  3. GARLIQUE [Concomitant]
     Indication: PRODUCT USED FOR UNKNOWN INDICATION
  4. FISH OIL [Concomitant]
     Indication: PRODUCT USED FOR UNKNOWN INDICATION
  5. CENTRUM SILVER MULTIVITAMINS [Concomitant]
     Indication: PRODUCT USED FOR UNKNOWN INDICATION
  6. ACTOPLUS MET [Concomitant]
     Indication: PRODUCT USED FOR UNKNOWN INDICATION
  7. GLUCOSAMINE + CHONDROITIN [Concomitant]
     Indication: PRODUCT USED FOR UNKNOWN INDICATION
     Dosage: AT BED TIME
  8. ESTER C [Concomitant]
     Indication: PRODUCT USED FOR UNKNOWN INDICATION
  9. METANX [Concomitant]
     Indication: PRODUCT USED FOR UNKNOWN INDICATION
  10. AMLODIPINE [Concomitant]
     Indication: PRODUCT USED FOR UNKNOWN INDICATION
  11. BENICAR [Concomitant]
     Indication: PRODUCT USED FOR UNKNOWN INDICATION
  12. SIMVASTATIN [Concomitant]
     Indication: PRODUCT USED FOR UNKNOWN INDICATION
     Dosage: 1-2 TABLETS AT BED TIME
  13. CALCIUM+VIT D [Concomitant]
     Indication: PRODUCT USED FOR UNKNOWN INDICATION
  14. ASPIRIN [Concomitant]
     Indication: PRODUCT USED FOR UNKNOWN INDICATION
     Dosage: AM
  15. K + [Concomitant]
     Indication: PRODUCT USED FOR UNKNOWN INDICATION
     Dosage: AT BED TIME
  16. FOSAMAX [Concomitant]
     Indication: PRODUCT USED FOR UNKNOWN INDICATION
  17. VITAMIN B-12 [Concomitant]
     Indication: PRODUCT USED FOR UNKNOWN INDICATION

REACTIONS (2)
  - FEELING HOT [None]
  - FLUSHING [None]
